FAERS Safety Report 20861268 (Version 1)
Quarter: 2022Q2

REPORT INFORMATION
  Report Type: Spontaneous
  Country: CN (occurrence: CN)
  Receive Date: 20220523
  Receipt Date: 20220523
  Transmission Date: 20220721
  Serious: Yes (Hospitalization, Other)
  Sender: FDA-Public Use
  Company Number: CN-ELI_LILLY_AND_COMPANY-CN202205006887

PATIENT
  Age: 69 Year
  Sex: Female
  Weight: 55 kg

DRUGS (9)
  1. PEMETREXED [Suspect]
     Active Substance: PEMETREXED
     Indication: Chemotherapy
     Dosage: 0.8 G, CYCLICAL
     Route: 041
     Dates: start: 20220213
  2. PEMETREXED [Suspect]
     Active Substance: PEMETREXED
     Indication: Targeted cancer therapy
     Dosage: 0.8 G, CYCLICAL
     Route: 041
     Dates: start: 20220315
  3. PEMETREXED [Suspect]
     Active Substance: PEMETREXED
     Dosage: 0.8 G, CYCLICAL
     Route: 041
     Dates: start: 20220412, end: 20220413
  4. NEDAPLATIN [Suspect]
     Active Substance: NEDAPLATIN
     Indication: Chemotherapy
     Dosage: 55 MG, CYCLICAL
     Route: 041
     Dates: start: 20220213, end: 20220414
  5. NEDAPLATIN [Suspect]
     Active Substance: NEDAPLATIN
     Indication: Targeted cancer therapy
     Dosage: 55 MG, CYCLICAL
     Route: 041
     Dates: start: 20220315
  6. NEDAPLATIN [Suspect]
     Active Substance: NEDAPLATIN
     Dosage: 55 MG, CYCLICAL
     Route: 041
     Dates: start: 20220412, end: 20220414
  7. FURMONERTINIB MESILATE [Suspect]
     Active Substance: FURMONERTINIB MESILATE
     Indication: Chemotherapy
     Dosage: 80 MG, DAILY
     Route: 048
     Dates: start: 20220213
  8. FURMONERTINIB MESILATE [Suspect]
     Active Substance: FURMONERTINIB MESILATE
     Indication: Targeted cancer therapy
     Dosage: 80 MG, DAILY
     Route: 048
     Dates: start: 20220315
  9. FURMONERTINIB MESILATE [Suspect]
     Active Substance: FURMONERTINIB MESILATE
     Dosage: 80 MG, DAILY
     Route: 048
     Dates: start: 20220412, end: 20220415

REACTIONS (5)
  - Gastrointestinal disorder [Recovering/Resolving]
  - Lung consolidation [Recovering/Resolving]
  - Atelectasis [Recovering/Resolving]
  - Myelosuppression [Recovering/Resolving]
  - Pseudomonas infection [Recovering/Resolving]

NARRATIVE: CASE EVENT DATE: 20220415
